FAERS Safety Report 8892379 (Version 12)
Quarter: 2014Q2

REPORT INFORMATION
  Report Type: Spontaneous
  Country: US (occurrence: US)
  Receive Date: 20121107
  Receipt Date: 20140403
  Transmission Date: 20141212
  Serious: Yes (Death, Hospitalization)
  Sender: FDA-Public Use
  Company Number: US-GLAXOSMITHKLINE-A1000145A

PATIENT
  Age: 61 Year
  Sex: Female

DRUGS (14)
  1. FLOLAN [Suspect]
     Indication: COR PULMONALE CHRONIC
     Dosage: 40.75NGKM CONTINUOUS
     Route: 042
     Dates: start: 20070921
  2. LASIX [Concomitant]
  3. OXYCODONE [Concomitant]
  4. NEXIUM [Concomitant]
  5. MULTIVITAMIN [Concomitant]
  6. SPIRONOLACTONE [Concomitant]
  7. LEVETIRACETAM [Concomitant]
  8. FOLIC ACID [Concomitant]
  9. ASPIRIN [Concomitant]
  10. GABAPENTIN [Concomitant]
  11. IRON [Concomitant]
  12. NAPROXEN [Concomitant]
  13. TYLENOL [Concomitant]
  14. DOCUSATE SODIUM [Concomitant]

REACTIONS (11)
  - Pulmonary oedema [Unknown]
  - Cardiac failure [Unknown]
  - Pulmonary arterial hypertension [Unknown]
  - Gastrointestinal surgery [Unknown]
  - Dyspnoea [Unknown]
  - Investigation [Not Recovered/Not Resolved]
  - Fluid overload [Unknown]
  - Pain in jaw [Recovering/Resolving]
  - Headache [Recovering/Resolving]
  - Dizziness [Unknown]
  - Death [Fatal]
